FAERS Safety Report 5120598-8 (Version None)
Quarter: 2006Q4

REPORT INFORMATION
  Report Type: 
  Country: None (occurrence: None)
  Receive Date: 20061002
  Receipt Date: 20060918
  Transmission Date: 20070319
  Serious: Yes (Death)
  Sender: FDA-Public Use
  Company Number: PHHO2006AU15210

PATIENT
  Age: 86 Year
  Sex: Female
  Weight: 46.9927 kg

DRUGS (2)
  1. LUCENTIS [Suspect]
     Indication: MACULAR DEGENERATION
     Dosage: 0.3 MG DAILY EY
     Route: 047
  2. VISUDYNE [Suspect]
     Indication: MACULAR DEGENERATION

REACTIONS (3)
  - CARDIAC FAILURE CONGESTIVE [None]
  - DIVERTICULUM [None]
  - GASTROINTESTINAL PERFORATION [None]
